FAERS Safety Report 12057712 (Version 2)
Quarter: 2016Q2

REPORT INFORMATION
  Report Type: Spontaneous
  Country: US (occurrence: US)
  Receive Date: 20160209
  Receipt Date: 20160503
  Transmission Date: 20160815
  Serious: No
  Sender: FDA-Public Use
  Company Number: US-LUNDBECK-DKLU2008559

PATIENT
  Age: 54 Year
  Sex: Female

DRUGS (4)
  1. NORTHERA [Suspect]
     Active Substance: DROXIDOPA
     Indication: PRODUCT USED FOR UNKNOWN INDICATION
     Dosage: ON TITRATION B SCHEDULED
     Route: 065
  2. NORTHERA [Suspect]
     Active Substance: DROXIDOPA
     Route: 065
  3. NORTHERA [Suspect]
     Active Substance: DROXIDOPA
     Route: 065
  4. NORTHERA [Suspect]
     Active Substance: DROXIDOPA
     Dosage: NO EVENING DOSE
     Route: 065

REACTIONS (5)
  - Circadian rhythm sleep disorder [Unknown]
  - Somnolence [Recovering/Resolving]
  - Headache [Recovering/Resolving]
  - Lethargy [Unknown]
  - Insomnia [Unknown]

NARRATIVE: CASE EVENT DATE: 201601
